FAERS Safety Report 4318691-2 (Version None)
Quarter: 2004Q1

REPORT INFORMATION
  Report Type: 
  Country: None (occurrence: None)
  Receive Date: 20040318
  Receipt Date: 20040312
  Transmission Date: 20041129
  Serious: Yes (Other)
  Sender: FDA-Public Use
  Company Number: FR-BRISTOL-MYERS SQUIBB COMPANY-12533733

PATIENT
  Age: 24 Year
  Sex: Female

DRUGS (3)
  1. VIDEX [Suspect]
     Indication: HIV INFECTION
  2. ZERIT [Suspect]
     Indication: HIV INFECTION
  3. VIRAMUNE [Suspect]
     Indication: HIV INFECTION

REACTIONS (1)
  - ASEPTIC NECROSIS BONE [None]
